FAERS Safety Report 5292688-0 (Version None)
Quarter: 2007Q2

REPORT INFORMATION
  Report Type: 
  Country: None (occurrence: None)
  Receive Date: 20070404
  Receipt Date: 20070322
  Transmission Date: 20071010
  Serious: Yes (Other)
  Sender: FDA-Public Use
  Company Number: SPV1-2007-01532

PATIENT
  Age: 13 Year
  Sex: Male
  Weight: 83 kg

DRUGS (1)
  1. DAYTRANA [Suspect]
     Indication: ATTENTION DEFICIT/HYPERACTIVITY DISORDER
     Dosage: SEE IMAGE
     Route: 062
     Dates: start: 20070131

REACTIONS (4)
  - AGGRESSION [None]
  - EDUCATIONAL PROBLEM [None]
  - LEGAL PROBLEM [None]
  - SUICIDAL IDEATION [None]
